FAERS Safety Report 9162213 (Version 1)
Quarter: 2013Q1

REPORT INFORMATION
  Report Type: Spontaneous
  Country: DK (occurrence: None)
  Receive Date: 20130220
  Receipt Date: 20130220
  Transmission Date: 20140127
  Serious: Yes (Hospitalization)
  Sender: FDA-Public Use
  Company Number: 2013MA001214

PATIENT
  Age: 55 Year
  Sex: Male
  Weight: 71 kg

DRUGS (3)
  1. OXALIPLATIN FOR INJECTION USP 100MG SINGLE-DOSE VIALS (ATLLC) (OXALIPLATIN) [Suspect]
     Indication: PANCREATIC CARCINOMA
     Route: 042
     Dates: start: 20120913, end: 20130125
  2. ONDANSETRON [Concomitant]
  3. DEXAMETHASONE [Concomitant]

REACTIONS (4)
  - Dyspnoea [None]
  - Feeling hot [None]
  - Hypotension [None]
  - Hyperhidrosis [None]
